FAERS Safety Report 23122532 (Version 16)
Quarter: 2024Q4

REPORT INFORMATION
  Report Type: Spontaneous
  Country: US (occurrence: US)
  Receive Date: 20231030
  Receipt Date: 20241111
  Transmission Date: 20250114
  Serious: No
  Sender: BIOGEN
  Company Number: US-BIOGEN-2023BI01233001

PATIENT
  Sex: Female

DRUGS (3)
  1. TYSABRI [Suspect]
     Active Substance: NATALIZUMAB
     Indication: Multiple sclerosis
     Route: 050
     Dates: start: 20230601, end: 20230601
  2. TYSABRI [Suspect]
     Active Substance: NATALIZUMAB
     Route: 050
     Dates: start: 20230708, end: 20230916
  3. TYSABRI [Suspect]
     Active Substance: NATALIZUMAB
     Route: 050
     Dates: start: 20231117

REACTIONS (16)
  - Inappropriate schedule of product administration [Unknown]
  - Illness [Not Recovered/Not Resolved]
  - Malaise [Unknown]
  - Infusion site pain [Unknown]
  - Cognitive disorder [Unknown]
  - Poor quality sleep [Unknown]
  - Infection [Unknown]
  - Stress [Unknown]
  - Cyst [Unknown]
  - Peripheral nerve injury [Unknown]
  - General physical health deterioration [Unknown]
  - Multiple sclerosis [Unknown]
  - Poor venous access [Unknown]
  - Hypersensitivity [Unknown]
  - Fatigue [Unknown]
  - Chest discomfort [Recovered/Resolved]

NARRATIVE: CASE EVENT DATE: 20230101
